FAERS Safety Report 9855354 (Version 1)
Quarter: 2014Q1

REPORT INFORMATION
  Report Type: Spontaneous
  Country: BY (occurrence: BY)
  Receive Date: 20140130
  Receipt Date: 20140130
  Transmission Date: 20141002
  Serious: Yes (Life-Threatening, Hospitalization)
  Sender: FDA-Public Use
  Company Number: BY-GE HEALTHCARE MEDICAL DIAGNOSTICS-OMPQ-PR-1401S-0064

PATIENT
  Age: 61 Year
  Sex: Female

DRUGS (2)
  1. OMNIPAQUE [Suspect]
     Indication: PANCREATIC CARCINOMA
     Route: 042
     Dates: start: 20140120, end: 20140120
  2. OMNIPAQUE [Suspect]
     Indication: DIAGNOSTIC PROCEDURE

REACTIONS (5)
  - Circulatory collapse [Recovered/Resolved]
  - Hypopnoea [Recovered/Resolved]
  - Loss of consciousness [Recovered/Resolved]
  - Cyanosis [Recovered/Resolved]
  - Blood pressure decreased [Recovered/Resolved]
